FAERS Safety Report 4565260-5 (Version None)
Quarter: 2005Q1

REPORT INFORMATION
  Report Type: 
  Country: None (occurrence: None)
  Receive Date: 20050131
  Receipt Date: 20050120
  Transmission Date: 20050727
  Serious: Yes (Other)
  Sender: FDA-Public Use
  Company Number: SE-ROCHE-392913

PATIENT
  Age: 45 Year
  Sex: Male

DRUGS (1)
  1. COPEGUS [Suspect]
     Indication: DRUG USE FOR UNKNOWN INDICATION
     Dosage: TABLET: FILM COATED
     Route: 065

REACTIONS (1)
  - GANGRENE [None]
